FAERS Safety Report 17605292 (Version 3)
Quarter: 2020Q2

REPORT INFORMATION
  Report Type: Report from Study
  Country: US (occurrence: US)
  Receive Date: 20200331
  Receipt Date: 20200521
  Transmission Date: 20200713
  Serious: No
  Sender: FDA-Public Use
  Company Number: NVSC2020US088397

PATIENT
  Sex: Female

DRUGS (1)
  1. PIQRAY [Suspect]
     Active Substance: ALPELISIB
     Indication: PRODUCT USED FOR UNKNOWN INDICATION
     Dosage: UNK
     Route: 048

REACTIONS (12)
  - Diarrhoea [Unknown]
  - Head discomfort [Unknown]
  - Decreased appetite [Unknown]
  - Headache [Unknown]
  - Taste disorder [Unknown]
  - Parosmia [Unknown]
  - Nausea [Unknown]
  - Sinusitis [Unknown]
  - Malaise [Unknown]
  - Hypersensitivity [Unknown]
  - Tongue discomfort [Unknown]
  - Adverse drug reaction [Unknown]
